FAERS Safety Report 8395043-X (Version None)
Quarter: 2012Q2

REPORT INFORMATION
  Report Type: 
  Country: None (occurrence: None)
  Receive Date: 20120530
  Receipt Date: 20120517
  Transmission Date: 20120825
  Serious: Yes (Hospitalization, Disabling, Other)
  Sender: FDA-Public Use
  Company Number: NO-MYLANLABS-2012S1010683

PATIENT
  Sex: Male
  Weight: 75 kg

DRUGS (7)
  1. ETOPOSIDE [Suspect]
     Dosage: 25MG EVERY OTHER DAY FOR THE LAST 8 MONTHS; CUMULATIVE DOSE OF 11.5 G/M2 OVER 31 MONTHS
     Route: 048
  2. PREDNISOLONE SODIUM SUCCINATE [Concomitant]
     Indication: MEDULLOBLASTOMA RECURRENT
     Dosage: 20MG
     Route: 065
  3. THALIDOMIDE [Suspect]
     Indication: MEDULLOBLASTOMA RECURRENT
     Dosage: MAXIMAL DOSE 200MG DAILY (3 MG/KG)
     Route: 048
  4. ETOPOSIDE [Suspect]
     Indication: MEDULLOBLASTOMA RECURRENT
     Dosage: MAXIMAL DOSE 100MG DAILY (50 MG/M2); CUMULATIVE DOSE OF 11.5 G/M2 OVER 31 MONTHS
     Route: 048
  5. DEPOCYT [Suspect]
     Indication: MEDULLOBLASTOMA RECURRENT
     Dosage: 50MG ON ALTERNATE WEEKS, GRADUALLY INCREASED TO EVERY OTHER MONTH; 3-MONTH BREAK AFTER 7TH COURSE
     Route: 037
  6. DEXAMETHASONE [Concomitant]
     Indication: ARACHNOIDITIS
     Dosage: 4MG X 2 FOR 6 DAYS FROM THE SECOND CYTARABINE COURSE ONWARD
     Route: 048
  7. CELECOXIB [Suspect]
     Indication: MEDULLOBLASTOMA RECURRENT
     Dosage: MAXIMAL DOSE 400MG X 2 DAILY (430 MG/M2)
     Route: 048

REACTIONS (21)
  - C-REACTIVE PROTEIN INCREASED [None]
  - CHEST PAIN [None]
  - MUCOSAL INFLAMMATION [None]
  - NEUTROPENIA [None]
  - CONFUSIONAL STATE [None]
  - HAEMATOTOXICITY [None]
  - ARACHNOIDITIS [None]
  - HEADACHE [None]
  - DYSARTHRIA [None]
  - SOMNOLENCE [None]
  - ATAXIA [None]
  - ANXIETY [None]
  - LISTLESS [None]
  - HYPOAESTHESIA [None]
  - DEAFNESS [None]
  - FALL [None]
  - PYREXIA [None]
  - PARAESTHESIA [None]
  - SINUSITIS [None]
  - DECREASED APPETITE [None]
  - FATIGUE [None]
